FAERS Safety Report 5662190-2 (Version None)
Quarter: 2008Q1

REPORT INFORMATION
  Report Type: 
  Country: None (occurrence: None)
  Receive Date: 20080221
  Receipt Date: 20071003
  Transmission Date: 20080703
  Serious: Yes (Hospitalization)
  Sender: FDA-Public Use
  Company Number: PHEH2007US13236

PATIENT

DRUGS (1)
  1. DIOVAN [Suspect]
     Dosage: 160MG

REACTIONS (1)
  - FATIGUE [None]
